FAERS Safety Report 5741172-6 (Version None)
Quarter: 2008Q2

REPORT INFORMATION
  Report Type: 
  Country: None (occurrence: None)
  Receive Date: 20080514
  Receipt Date: 20080429
  Transmission Date: 20081010
  Serious: No
  Sender: FDA-Public Use
  Company Number: 002#2#2008-00369

PATIENT
  Age: 67 Year
  Sex: Male
  Weight: 88 kg

DRUGS (7)
  1. NEUPRO [Suspect]
     Indication: PARKINSON'S DISEASE
     Dosage: 6MG/24H,1 IN 1 D,TRANSDERMAL;  4MG/24H,1 IN 1 D,TRANSDERMAL;  2MG/24H,1 IN 1 D,TRANSDERMAL
     Route: 062
     Dates: start: 20080201, end: 20080401
  2. NEUPRO [Suspect]
     Indication: PARKINSON'S DISEASE
     Dosage: 6MG/24H,1 IN 1 D,TRANSDERMAL;  4MG/24H,1 IN 1 D,TRANSDERMAL;  2MG/24H,1 IN 1 D,TRANSDERMAL
     Route: 062
     Dates: start: 20080408, end: 20080415
  3. NEUPRO [Suspect]
     Indication: PARKINSON'S DISEASE
     Dosage: 6MG/24H,1 IN 1 D,TRANSDERMAL;  4MG/24H,1 IN 1 D,TRANSDERMAL;  2MG/24H,1 IN 1 D,TRANSDERMAL
     Route: 062
     Dates: start: 20080415, end: 20080422
  4. STALEVO 100 [Concomitant]
  5. LIPITOR [Concomitant]
  6. NEXIUM [Concomitant]
  7. ASPIRIN [Concomitant]

REACTIONS (2)
  - PHARMACEUTICAL PRODUCT COMPLAINT [None]
  - TREMOR [None]
